FAERS Safety Report 5498023-7 (Version None)
Quarter: 2007Q4

REPORT INFORMATION
  Report Type: 
  Country: None (occurrence: None)
  Receive Date: 20071025
  Receipt Date: 20071013
  Transmission Date: 20080405
  Serious: Yes (Other)
  Sender: FDA-Public Use
  Company Number: US-PFIZER INC-2007076902

PATIENT
  Sex: Female
  Weight: 73.5 kg

DRUGS (7)
  1. CHANTIX [Suspect]
     Indication: SMOKING CESSATION THERAPY
     Route: 048
  2. ACTOS [Concomitant]
  3. METFORMIN [Concomitant]
  4. GLYBURIDE [Concomitant]
  5. ALL OTHER THERAPEUTIC PRODUCTS [Concomitant]
  6. AZULFIDINE [Concomitant]
  7. ACETYLSALICYLIC ACID SRT [Concomitant]

REACTIONS (10)
  - ASTHENIA [None]
  - DECREASED ACTIVITY [None]
  - DECREASED APPETITE [None]
  - DIZZINESS [None]
  - GENERAL PHYSICAL CONDITION ABNORMAL [None]
  - HEAD DISCOMFORT [None]
  - HYPERAESTHESIA [None]
  - MALAISE [None]
  - NAUSEA [None]
  - THINKING ABNORMAL [None]
